FAERS Safety Report 13716986 (Version 2)
Quarter: 2017Q3

REPORT INFORMATION
  Report Type: Spontaneous
  Country: FR (occurrence: FR)
  Receive Date: 20170705
  Receipt Date: 20170706
  Transmission Date: 20171127
  Serious: Yes (Hospitalization, Other)
  Sender: FDA-Public Use
  Company Number: FR-SYNTHON BV-NL01PV17_44139

PATIENT
  Age: 75 Year
  Sex: Male

DRUGS (3)
  1. DAFALGAN [Concomitant]
     Active Substance: ACETAMINOPHEN
     Dosage: 1 DF, FROM TIME TO TIME
  2. BICARBONATE SODIUM [Concomitant]
     Active Substance: SODIUM BICARBONATE
     Indication: URINE ALKALINISATION THERAPY
     Dosage: 1 DF, DAILY
  3. TAMSULOSINE BIOGARAN [Suspect]
     Active Substance: TAMSULOSIN
     Indication: PROSTATIC ADENOMA
     Dosage: 1 DF (0.4 MG), QD
     Route: 065
     Dates: start: 2016

REACTIONS (3)
  - Renal failure [Not Recovered/Not Resolved]
  - Chest pain [Recovered/Resolved]
  - Blood creatinine increased [Not Recovered/Not Resolved]

NARRATIVE: CASE EVENT DATE: 2017
